FAERS Safety Report 18779994 (Version 1)
Quarter: 2021Q1

REPORT INFORMATION
  Report Type: Spontaneous
  Country: US (occurrence: US)
  Receive Date: 20210122
  Receipt Date: 20210122
  Transmission Date: 20210419
  Serious: Yes (Hospitalization)
  Sender: FDA-Public Use
  Company Number: None

PATIENT
  Age: 74 Year
  Sex: Male

DRUGS (3)
  1. OXALIPLATIN SDV 100MG/20ML [Suspect]
     Active Substance: OXALIPLATIN
     Route: 042
     Dates: start: 202012
  2. LEUCOVORIN. [Concomitant]
     Active Substance: LEUCOVORIN
  3. FLUOROURACIL. [Concomitant]
     Active Substance: FLUOROURACIL

REACTIONS (3)
  - Fatigue [None]
  - Pancytopenia [None]
  - Neuropathy peripheral [None]

NARRATIVE: CASE EVENT DATE: 20210115
